FAERS Safety Report 4974093-7 (Version None)
Quarter: 2006Q2

REPORT INFORMATION
  Report Type: 
  Country: None (occurrence: None)
  Receive Date: 20060417
  Receipt Date: 20060410
  Transmission Date: 20061013
  Serious: Yes (Disabling)
  Sender: FDA-Public Use
  Company Number: FR-ROCHE-443996

PATIENT
  Age: 22 Year
  Sex: Female

DRUGS (2)
  1. CELLCEPT [Suspect]
     Indication: MULTIPLE SCLEROSIS
     Route: 065
     Dates: start: 20050915, end: 20051002
  2. MELIANE [Concomitant]
     Route: 048
     Dates: start: 20050601

REACTIONS (6)
  - DRUG EXPOSURE DURING PREGNANCY [None]
  - HYDROCEPHALUS [None]
  - LEUKOPENIA [None]
  - MAJOR DEPRESSION [None]
  - POLYHYDRAMNIOS [None]
  - PREGNANCY [None]
